FAERS Safety Report 4447760-1 (Version None)
Quarter: 2004Q3

REPORT INFORMATION
  Report Type: 
  Country: None (occurrence: None)
  Receive Date: 20040819
  Receipt Date: 20031222
  Transmission Date: 20050211
  Serious: Yes (Hospitalization)
  Sender: FDA-Public Use
  Company Number: 233794

PATIENT
  Age: 12 Year
  Sex: Female

DRUGS (3)
  1. NOVOLIN R [Suspect]
     Indication: DIABETES MELLITUS INSULIN-DEPENDENT
     Dosage: SUBCUTANEOUS
     Route: 058
  2. NOVOLIN N PENFIL(INSULIN HUMAN) SUSPENSION FOR INJECTION, 100 IU/ML [Concomitant]
  3. INDUO (INSULIN DELIVERY DEVICE) [Concomitant]

REACTIONS (2)
  - BLOOD GLUCOSE INCREASED [None]
  - DIABETIC KETOACIDOSIS [None]
